FAERS Safety Report 8326721-6 (Version None)
Quarter: 2012Q2

REPORT INFORMATION
  Report Type: 
  Country: None (occurrence: None)
  Receive Date: 20120501
  Receipt Date: 20120425
  Transmission Date: 20120825
  Serious: Yes (Hospitalization, Other)
  Sender: FDA-Public Use
  Company Number: AT-ABBOTT-12P-009-0925242-00

PATIENT
  Sex: Male
  Weight: 97 kg

DRUGS (3)
  1. ZEMPLAR [Suspect]
     Indication: HYPERPARATHYROIDISM SECONDARY
     Dosage: 1-0-0
     Route: 048
     Dates: start: 20111223
  2. OPIUM/NALOXONE TAB [Concomitant]
     Indication: PRODUCT USED FOR UNKNOWN INDICATION
     Dosage: 20/10 MG 0-0-0-1
     Route: 048
     Dates: start: 20120411
  3. CEFUROXIME SODIUM [Suspect]
     Indication: PRODUCT USED FOR UNKNOWN INDICATION
     Dosage: 1-0-0
     Route: 042
     Dates: start: 20120410, end: 20120413

REACTIONS (5)
  - INFLAMMATION [None]
  - BRONCHOPNEUMONIA [None]
  - DYSPNOEA [None]
  - PYREXIA [None]
  - STAPHYLOCOCCAL INFECTION [None]
